FAERS Safety Report 10039166 (Version 1)
Quarter: 2014Q1

REPORT INFORMATION
  Report Type: Spontaneous
  Country: US (occurrence: US)
  Receive Date: 20140326
  Receipt Date: 20140326
  Transmission Date: 20141002
  Serious: No
  Sender: FDA-Public Use
  Company Number: US-ROXANE LABORATORIES, INC.-2014-RO-00449RO

PATIENT
  Sex: Female
  Weight: 91 kg

DRUGS (1)
  1. METHADONE [Suspect]
     Indication: PAIN
     Route: 065

REACTIONS (1)
  - Pruritus [Unknown]
